FAERS Safety Report 4310344-X (Version None)
Quarter: 2004Q1

REPORT INFORMATION
  Report Type: 
  Country: None (occurrence: None)
  Receive Date: 20040303
  Receipt Date: 20030703
  Transmission Date: 20041129
  Serious: Yes (Other)
  Sender: FDA-Public Use
  Company Number: US-ROCHE-341778

PATIENT
  Age: 20 Year
  Sex: Female

DRUGS (6)
  1. ACCUTANE [Suspect]
     Indication: DRUG USE FOR UNKNOWN INDICATION
     Route: 065
     Dates: start: 20030103, end: 20030523
  2. ORAL CONTRACEPTIVE PILL [Concomitant]
     Indication: CONTRACEPTION
     Route: 048
     Dates: start: 20030115, end: 20030315
  3. ANTIBIOTICS NOS [Concomitant]
     Route: 048
  4. YASMIN [Concomitant]
  5. ANTIBIOTICS [Concomitant]
     Route: 061
  6. BENZOYL PEROXIDE [Concomitant]

REACTIONS (2)
  - COMPLICATIONS OF MATERNAL EXPOSURE TO THERAPEUTIC DRUGS [None]
  - ECTOPIC PREGNANCY [None]
